FAERS Safety Report 7314899-2 (Version None)
Quarter: 2011Q1

REPORT INFORMATION
  Report Type: 
  Country: None (occurrence: None)
  Receive Date: 20110225
  Receipt Date: 20100216
  Transmission Date: 20110831
  Serious: No
  Sender: FDA-Public Use
  Company Number: US-MYLANLABS-2010S1001159

PATIENT
  Age: 2 Decade
  Sex: Female
  Weight: 56.7 kg

DRUGS (1)
  1. AMNESTEEM [Suspect]
     Indication: ACNE
     Route: 048
     Dates: start: 20091201

REACTIONS (3)
  - AGGRESSION [None]
  - MOOD ALTERED [None]
  - ABNORMAL BEHAVIOUR [None]
